FAERS Safety Report 4435547-5 (Version None)
Quarter: 2004Q3

REPORT INFORMATION
  Report Type: 
  Country: None (occurrence: None)
  Receive Date: 20040726
  Receipt Date: 20040430
  Transmission Date: 20050211
  Serious: No
  Sender: FDA-Public Use
  Company Number: USA040566455

PATIENT
  Age: 79 Year
  Sex: Female

DRUGS (2)
  1. FORTEO [Suspect]
     Indication: OSTEOPOROSIS
     Dates: start: 20040201
  2. PRILOSEC [Concomitant]

REACTIONS (4)
  - BONE PAIN [None]
  - INJECTION SITE HAEMORRHAGE [None]
  - VERTIGO [None]
  - WALKING AID USER [None]
